FAERS Safety Report 15598000 (Version 10)
Quarter: 2021Q2

REPORT INFORMATION
  Report Type: Spontaneous
  Country: US (occurrence: US)
  Receive Date: 20181108
  Receipt Date: 20210514
  Transmission Date: 20210716
  Serious: Yes (Other)
  Sender: FDA-Public Use
  Company Number: US-PFIZER INC-2018456938

PATIENT
  Age: 71 Year
  Sex: Female

DRUGS (1)
  1. XELJANZ XR [Suspect]
     Active Substance: TOFACITINIB CITRATE
     Dosage: 11 MG

REACTIONS (8)
  - Malaise [Unknown]
  - Back disorder [Unknown]
  - Limb injury [Unknown]
  - Pain [Unknown]
  - Oropharyngeal pain [Unknown]
  - Limb discomfort [Unknown]
  - Arthralgia [Unknown]
  - Peripheral swelling [Unknown]
